FAERS Safety Report 25380216 (Version 1)
Quarter: 2025Q2

REPORT INFORMATION
  Report Type: Spontaneous
  Country: US (occurrence: US)
  Receive Date: 20250530
  Receipt Date: 20250530
  Transmission Date: 20250717
  Serious: Yes (Hospitalization, Other)
  Sender: GALDERMA
  Company Number: US-MLMSERVICE-20250509-PI501514-00129-2

PATIENT

DRUGS (1)
  1. DOXYCYCLINE [Suspect]
     Active Substance: DOXYCYCLINE
     Indication: Sinusitis
     Route: 048

REACTIONS (12)
  - Intracranial pressure increased [Recovered/Resolved]
  - Optic perineuritis [Recovered/Resolved]
  - Retinal exudates [Recovered/Resolved]
  - Diplopia [Recovered/Resolved]
  - Papilloedema [Recovered/Resolved]
  - VIth nerve disorder [Recovered/Resolved]
  - Neck pain [Recovered/Resolved]
  - Tinnitus [Recovered/Resolved]
  - Vision blurred [Recovered/Resolved]
  - Intracranial venous sinus stenosis [Unknown]
  - Headache [Recovered/Resolved]
  - Intentional product use issue [Recovered/Resolved]
